FAERS Safety Report 5386992-5 (Version None)
Quarter: 2007Q3

REPORT INFORMATION
  Report Type: 
  Country: None (occurrence: None)
  Receive Date: 20070713
  Receipt Date: 20070710
  Transmission Date: 20080115
  Serious: Yes (Life-Threatening, Hospitalization, Disabling)
  Sender: FDA-Public Use
  Company Number: US-MERCK-0707USA01734

PATIENT
  Age: 88 Year
  Sex: Female

DRUGS (2)
  1. JANUMET [Suspect]
     Indication: TYPE 2 DIABETES MELLITUS
     Route: 048
     Dates: start: 20070101, end: 20070101
  2. GLUCOPHAGE [Concomitant]
     Route: 065

REACTIONS (3)
  - MALAISE [None]
  - PYREXIA [None]
  - RENAL FAILURE [None]
